FAERS Safety Report 9399991 (Version 1)
Quarter: 2013Q3

REPORT INFORMATION
  Report Type: Spontaneous
  Country: NO (occurrence: NO)
  Receive Date: 20130715
  Receipt Date: 20130715
  Transmission Date: 20140515
  Serious: Yes (Hospitalization)
  Sender: FDA-Public Use
  Company Number: NO-ELI_LILLY_AND_COMPANY-NO201307002915

PATIENT
  Age: 91 Year
  Sex: Female

DRUGS (8)
  1. ZYPREXA [Suspect]
     Dosage: 5 MG, QD
     Route: 048
     Dates: start: 20130604, end: 20130624
  2. SOBRIL [Concomitant]
     Dosage: 5 MG, PRN
     Route: 048
  3. PARACET                            /00020001/ [Concomitant]
     Dosage: UNK, QID
     Route: 048
  4. OXYNORM [Concomitant]
     Dosage: 5 MG, PRN
     Route: 048
  5. BETULAC [Concomitant]
     Dosage: 15 ML, BID
     Route: 048
  6. FURIX [Concomitant]
     Dosage: 20 MG, PRN
     Route: 048
  7. OXYCONTIN [Concomitant]
     Dosage: 5 MG, BID
     Route: 048
  8. BRONKYL [Concomitant]
     Dosage: 200 MG, PRN
     Route: 048

REACTIONS (1)
  - Deep vein thrombosis [Recovering/Resolving]
